FAERS Safety Report 4690200-8 (Version None)
Quarter: 2005Q2

REPORT INFORMATION
  Report Type: 
  Country: None (occurrence: None)
  Receive Date: 20050613
  Receipt Date: 20050602
  Transmission Date: 20051028
  Serious: Yes (Other)
  Sender: FDA-Public Use
  Company Number: 2005083328

PATIENT
  Sex: Female
  Weight: 60.782 kg

DRUGS (5)
  1. DILANTIN KAPSEAL [Suspect]
     Indication: CONVULSION
     Dosage: 300 MG (100 MG, 1 IN 1 D), ORAL
     Route: 048
     Dates: start: 19740101
  2. THYROLAR                   (LEVOTHYROXINE SODIUM) [Concomitant]
  3. PHENOBARBITAL [Concomitant]
  4. MULTI-VITAMINS [Concomitant]
  5. SYNTHROID [Concomitant]

REACTIONS (2)
  - BONE DENSITY DECREASED [None]
  - WHITE BLOOD CELL COUNT DECREASED [None]
